FAERS Safety Report 5643132-2 (Version None)
Quarter: 2008Q1

REPORT INFORMATION
  Report Type: 
  Country: None (occurrence: None)
  Receive Date: 20080228
  Receipt Date: 20080207
  Transmission Date: 20080703
  Serious: Yes (Death, Hospitalization)
  Sender: FDA-Public Use
  Company Number: JP-ROCHE-549162

PATIENT
  Age: 81 Year
  Sex: Female

DRUGS (13)
  1. DENOSINE ORAL [Suspect]
     Route: 042
     Dates: start: 20071015
  2. CYCLOPHOSPHAMIDE [Concomitant]
     Route: 048
  3. BISPHOSPHONATE [Concomitant]
     Route: 065
     Dates: start: 20010701
  4. BISPHOSPHONATE [Concomitant]
     Route: 065
     Dates: start: 20010601
  5. ETOPOSIDE [Concomitant]
     Route: 048
     Dates: start: 20010705
  6. VINCRISTINE SULFATE [Concomitant]
     Route: 051
     Dates: start: 20010805
  7. CYCLOPHOSPHAMIDE [Concomitant]
     Route: 051
     Dates: start: 20010805
  8. CYCLOPHOSPHAMIDE [Concomitant]
     Route: 051
     Dates: start: 20010825
  9. DOXORUBICIN HYDROCHLORIDE [Concomitant]
     Route: 051
     Dates: start: 20010805
  10. PIRARUBICIN HYDROCHLORIDE [Concomitant]
     Route: 051
     Dates: start: 20010825
  11. ONCOVIN [Concomitant]
     Route: 051
     Dates: start: 20010825
  12. TRETINOIN [Concomitant]
     Route: 048
  13. MORPHINE SULFATE [Concomitant]
     Route: 042

REACTIONS (4)
  - ALTERED STATE OF CONSCIOUSNESS [None]
  - COMA [None]
  - DEATH [None]
  - RENAL IMPAIRMENT [None]
